FAERS Safety Report 12348714 (Version 2)
Quarter: 2016Q2

REPORT INFORMATION
  Report Type: Report from Study
  Country: US (occurrence: US)
  Receive Date: 20160509
  Receipt Date: 20160525
  Transmission Date: 20160815
  Serious: Yes (Hospitalization, Other)
  Sender: FDA-Public Use
  Company Number: US-BRISTOL-MYERS SQUIBB COMPANY-BMS-2016-025969

PATIENT
  Age: 56 Year
  Sex: Male
  Weight: 60 kg

DRUGS (4)
  1. LOVENOX [Concomitant]
     Active Substance: ENOXAPARIN SODIUM
     Dosage: 60 MG, BID
     Route: 065
     Dates: start: 20160428, end: 20160501
  2. LOVENOX [Concomitant]
     Active Substance: ENOXAPARIN SODIUM
     Dosage: 30 MG, BID
     Route: 065
     Dates: start: 20160501
  3. NIVOLUMAB [Suspect]
     Active Substance: NIVOLUMAB
     Indication: NON-SMALL CELL LUNG CANCER
     Dosage: 183 MG, UNK
     Route: 042
     Dates: start: 20150702
  4. LOVENOX [Concomitant]
     Active Substance: ENOXAPARIN SODIUM
     Indication: PRODUCT USED FOR UNKNOWN INDICATION
     Dosage: UNK
     Route: 058
     Dates: start: 20160331

REACTIONS (3)
  - Oedema peripheral [Recovering/Resolving]
  - Haemorrhage intracranial [Unknown]
  - Face oedema [Recovering/Resolving]

NARRATIVE: CASE EVENT DATE: 20160401
